FAERS Safety Report 11229827 (Version 2)
Quarter: 2015Q3

REPORT INFORMATION
  Report Type: Spontaneous
  Country: ES (occurrence: ES)
  Receive Date: 20150630
  Receipt Date: 20150721
  Transmission Date: 20151125
  Serious: Yes (Hospitalization, Other)
  Sender: FDA-Public Use
  Company Number: ES-TAKEDA-2015TUS008302

PATIENT
  Age: 19 Year
  Sex: Male
  Weight: 52 kg

DRUGS (4)
  1. METHYLPREDNISOLONE. [Suspect]
     Active Substance: METHYLPREDNISOLONE
     Indication: CROHN^S DISEASE
     Dosage: 16 MG, QD
     Route: 048
  2. ENTYVIO [Suspect]
     Active Substance: VEDOLIZUMAB
     Indication: CROHN^S DISEASE
     Dosage: 300 MG, 1 VIAL
     Route: 042
     Dates: start: 20150612, end: 20150612
  3. MESALAZINE [Concomitant]
     Active Substance: MESALAMINE
     Indication: CROHN^S DISEASE
     Dosage: 4 G, QD
     Route: 048
  4. AZATHIOPRINE. [Suspect]
     Active Substance: AZATHIOPRINE
     Indication: CROHN^S DISEASE
     Dosage: 100 MG, QD
     Route: 048

REACTIONS (2)
  - Intestinal perforation [Not Recovered/Not Resolved]
  - Abscess intestinal [Not Recovered/Not Resolved]

NARRATIVE: CASE EVENT DATE: 20150622
